FAERS Safety Report 4693939-3 (Version None)
Quarter: 2005Q2

REPORT INFORMATION
  Report Type: 
  Country: None (occurrence: None)
  Receive Date: 20050616
  Receipt Date: 20050607
  Transmission Date: 20051028
  Serious: Yes (Hospitalization)
  Sender: FDA-Public Use
  Company Number: 200503808

PATIENT
  Age: 91 Year
  Sex: Female

DRUGS (8)
  1. RESTASIS [Suspect]
     Indication: DRY EYE
     Dates: start: 20020101
  2. RESTASIS [Suspect]
     Indication: DRY EYE
     Dosage: 2 DROP BID EYE
     Dates: start: 20050405
  3. FUROSEMIDE [Concomitant]
  4. NORVASC [Concomitant]
  5. PREVACID [Concomitant]
  6. POTASSIUM CHLORIDE [Concomitant]
  7. ELPRONCYOLOM [Concomitant]
  8. NITROGLYCERIN [Concomitant]

REACTIONS (1)
  - DIZZINESS [None]
